FAERS Safety Report 7003230-8 (Version None)
Quarter: 2010Q3

REPORT INFORMATION
  Report Type: 
  Country: None (occurrence: None)
  Receive Date: 20100920
  Receipt Date: 20100829
  Transmission Date: 20110219
  Serious: Yes (Other)
  Sender: FDA-Public Use
  Company Number: JP-ALLERGAN-1011442US

PATIENT
  Age: 48 Year
  Sex: Male

DRUGS (4)
  1. BOTULINUM TOXIN TYPE A [Suspect]
     Indication: TORTICOLLIS
     Dosage: 60 UNITS, SINGLE
     Route: 030
     Dates: start: 20050113, end: 20050113
  2. BOTULINUM TOXIN TYPE A [Suspect]
     Dosage: 40 UNITS, SINGLE
     Route: 030
     Dates: start: 20050422, end: 20050422
  3. BOTULINUM TOXIN TYPE A [Suspect]
     Dosage: 20 UNITS, SINGLE
     Route: 030
     Dates: start: 20050727, end: 20050727
  4. BOTULINUM TOXIN TYPE A [Suspect]
     Dosage: 20 UNITS, SINGLE
     Route: 030
     Dates: start: 20051026, end: 20051026

REACTIONS (2)
  - DYSPHAGIA [None]
  - EATING DISORDER [None]
